FAERS Safety Report 11176535 (Version 1)
Quarter: 2015Q2

REPORT INFORMATION
  Report Type: Spontaneous
  Country: US (occurrence: US)
  Receive Date: 20150610
  Receipt Date: 20150610
  Transmission Date: 20150821
  Serious: Yes (Hospitalization, Other)
  Sender: FDA-Public Use
  Company Number: US-AMGEN-USASP2015055570

PATIENT
  Age: 61 Year
  Sex: Male

DRUGS (1)
  1. ENBREL [Suspect]
     Active Substance: ETANERCEPT
     Indication: PRODUCT USED FOR UNKNOWN INDICATION
     Dosage: 50 MG, UNK
     Route: 065
     Dates: start: 201211

REACTIONS (6)
  - Hospitalisation [Recovered/Resolved]
  - Leukaemia [Unknown]
  - Sinusitis [Unknown]
  - Transfusion [Unknown]
  - Pneumonia [Unknown]
  - Furuncle [Unknown]

NARRATIVE: CASE EVENT DATE: 201412
